FAERS Safety Report 17416043 (Version 2)
Quarter: 2020Q2

REPORT INFORMATION
  Report Type: Spontaneous
  Country: AU (occurrence: AU)
  Receive Date: 20200213
  Receipt Date: 20200504
  Transmission Date: 20200713
  Serious: Yes (Disabling, Other)
  Sender: FDA-Public Use
  Company Number: AU-AMERICAN REGENT INC-2020000339

PATIENT
  Age: 29 Year
  Sex: Female
  Weight: 55 kg

DRUGS (1)
  1. FERINJECT [Suspect]
     Active Substance: FERRIC CARBOXYMALTOSE
     Indication: IRON DEFICIENCY
     Dosage: 1 GRAM (500 X 2) DILUTED IN 120 ML OF 0.9% SODIUM CHLORIDE
     Dates: start: 20190708, end: 20190708

REACTIONS (4)
  - Haemosiderin stain [Unknown]
  - Infusion site discolouration [Not Recovered/Not Resolved]
  - Pigmentation disorder [Unknown]
  - Skin discolouration [Not Recovered/Not Resolved]

NARRATIVE: CASE EVENT DATE: 20190708
